FAERS Safety Report 7151302-X (Version None)
Quarter: 2010Q4

REPORT INFORMATION
  Report Type: 
  Country: None (occurrence: None)
  Receive Date: 20101210
  Receipt Date: 20101207
  Transmission Date: 20110411
  Serious: Yes (Other)
  Sender: FDA-Public Use
  Company Number: US-CEPHALON-2010006332

PATIENT
  Sex: Female
  Weight: 96 kg

DRUGS (7)
  1. PROVIGIL [Suspect]
     Indication: SLEEP DISORDER
     Route: 048
     Dates: start: 20100901
  2. FLAGYL [Concomitant]
     Dates: start: 20101202
  3. ETODOLAC [Concomitant]
  4. KLONOPIN [Concomitant]
  5. LORACET [Concomitant]
  6. PROMETHAZINE [Concomitant]
     Dates: start: 20090101
  7. ROBITUSSIN [Concomitant]
     Dates: start: 20101203

REACTIONS (10)
  - ANXIETY [None]
  - BACK PAIN [None]
  - DYSPNOEA [None]
  - HEADACHE [None]
  - INSOMNIA [None]
  - LOSS OF CONSCIOUSNESS [None]
  - NAUSEA [None]
  - NECK PAIN [None]
  - VOMITING [None]
  - WEIGHT DECREASED [None]
